FAERS Safety Report 6148176-2 (Version None)
Quarter: 2009Q2

REPORT INFORMATION
  Report Type: 
  Country: None (occurrence: None)
  Receive Date: 20090406
  Receipt Date: 20090323
  Transmission Date: 20091009
  Serious: Yes (Hospitalization)
  Sender: FDA-Public Use
  Company Number: WAES 0903ESP00039

PATIENT
  Age: 50 Year
  Sex: Male

DRUGS (2)
  1. CAP VORINOSTAT [Suspect]
     Indication: LUNG NEOPLASM MALIGNANT
     Dosage: 400 MG/DAILY PO
     Route: 048
     Dates: start: 20090113, end: 20090303
  2. TAB ERLOTINIB HYDROCHLORIDE [Suspect]
     Indication: LUNG NEOPLASM MALIGNANT
     Dosage: 150 MG/DAILY PO
     Route: 048
     Dates: start: 20090113, end: 20090310

REACTIONS (1)
  - MYELITIS [None]
